FAERS Safety Report 4379428-4 (Version None)
Quarter: 2004Q2

REPORT INFORMATION
  Report Type: 
  Country: None (occurrence: None)
  Receive Date: 20040614
  Receipt Date: 20040602
  Transmission Date: 20050107
  Serious: Yes (Hospitalization)
  Sender: FDA-Public Use
  Company Number: SE-JNJFOC-20040600497

PATIENT
  Age: 65 Year
  Sex: Female

DRUGS (5)
  1. REMICADE [Suspect]
     Indication: RHEUMATOID ARTHRITIS
     Dosage: 3RD DOSE OF REMICADE
     Dates: start: 20040101, end: 20040228
  2. METHOTREXATE [Suspect]
     Indication: RHEUMATOID ARTHRITIS
     Dosage: 17 MG 1 IN 1 DAY ORAL
     Route: 048
     Dates: start: 20000701, end: 20040312
  3. DIFLUCAN [Concomitant]
  4. NABUMETONE [Concomitant]
  5. KALCIPOS (CALCIUM CARBONATE) [Concomitant]

REACTIONS (8)
  - ALVEOLITIS [None]
  - BACK PAIN [None]
  - CANDIDIASIS [None]
  - DRUG INTERACTION [None]
  - DYSPNOEA [None]
  - HEADACHE [None]
  - LUNG INFILTRATION [None]
  - PNEUMOCYSTIS CARINII INFECTION [None]
